FAERS Safety Report 17882021 (Version 1)
Quarter: 2020Q2

REPORT INFORMATION
  Report Type: Spontaneous
  Country: US (occurrence: US)
  Receive Date: 20200610
  Receipt Date: 20200610
  Transmission Date: 20200714
  Serious: No
  Sender: FDA-Public Use
  Company Number: US-SEPTODONT-201905594

PATIENT
  Age: 41 Year
  Sex: Female

DRUGS (2)
  1. SEPTOCAINE AND EPINEPHRINE [Suspect]
     Active Substance: ARTICAINE HYDROCHLORIDE\EPINEPHRINE BITARTRATE
     Indication: DENTAL LOCAL ANAESTHESIA
     Dosage: 1.5 CARPULES OF 1.7CC
     Route: 004
     Dates: start: 20191105, end: 20191105
  2. SEPTOCAINE AND EPINEPHRINE [Suspect]
     Active Substance: ARTICAINE HYDROCHLORIDE\EPINEPHRINE BITARTRATE
     Indication: DENTAL LOCAL ANAESTHESIA
     Dosage: 1.5 CARPULES OF 1.7CC
     Route: 004
     Dates: start: 20191105, end: 20191105

REACTIONS (2)
  - General symptom [Recovered/Resolved]
  - Hot flush [Recovered/Resolved]

NARRATIVE: CASE EVENT DATE: 20191105
